FAERS Safety Report 6068357-6 (Version None)
Quarter: 2009Q1

REPORT INFORMATION
  Report Type: 
  Country: None (occurrence: None)
  Receive Date: 20090206
  Receipt Date: 20090130
  Transmission Date: 20090719
  Serious: Yes (Other)
  Sender: FDA-Public Use
  Company Number: US-JNJFOC-20061003410

PATIENT
  Sex: Female

DRUGS (2)
  1. RISPERDAL [Suspect]
  2. RISPERDAL [Suspect]
     Indication: DEPRESSION

REACTIONS (3)
  - DIABETES MELLITUS [None]
  - PANCREATITIS [None]
  - SOMNOLENCE [None]
